FAERS Safety Report 18119909 (Version 1)
Quarter: 2020Q3

REPORT INFORMATION
  Report Type: Spontaneous
  Country: US (occurrence: RU)
  Receive Date: 20200806
  Receipt Date: 20200806
  Transmission Date: 20201103
  Serious: Yes (Life-Threatening)
  Sender: FDA-Public Use
  Company Number: RU-BIOMARINAP-RU-2020-131478

PATIENT
  Age: 24 Year
  Sex: Male
  Weight: 52 kg

DRUGS (4)
  1. SODIUM CHLORIDE. [Concomitant]
     Active Substance: SODIUM CHLORIDE
     Indication: PRODUCT USED FOR UNKNOWN INDICATION
     Dosage: UNK
     Dates: start: 20200714, end: 20200715
  2. PREDNISOLONE. [Concomitant]
     Active Substance: PREDNISOLONE
     Indication: PREMEDICATION
     Dosage: UNK
     Dates: start: 20200715
  3. SUPRASTIN [Concomitant]
     Active Substance: CHLOROPYRAMINE HYDROCHLORIDE
     Indication: PREMEDICATION
     Dosage: UNK
     Dates: start: 20200715
  4. ALDURAZYME [Suspect]
     Active Substance: LARONIDASE
     Indication: MUCOPOLYSACCHARIDOSIS I
     Dosage: 5 MILLILITER, QD
     Route: 041
     Dates: start: 20200714, end: 20200715

REACTIONS (7)
  - Dyspnoea [Recovered/Resolved]
  - Fear [Unknown]
  - Blood pressure decreased [Unknown]
  - Face oedema [Unknown]
  - Localised oedema [Unknown]
  - Rash papular [Unknown]
  - Rash [Unknown]

NARRATIVE: CASE EVENT DATE: 20200714
